FAERS Safety Report 4722631-1 (Version None)
Quarter: 2005Q3

REPORT INFORMATION
  Report Type: 
  Country: None (occurrence: None)
  Receive Date: 20050720
  Receipt Date: 20050711
  Transmission Date: 20060218
  Serious: Yes (Disabling)
  Sender: FDA-Public Use
  Company Number: 2005056865

PATIENT
  Age: 63 Year
  Sex: Male
  Weight: 88.905 kg

DRUGS (14)
  1. LIPITOR [Suspect]
     Indication: BLOOD CHOLESTEROL INCREASED
     Dosage: 10 MG (10 MG, 1 IN 1 D), ORAL
     Route: 048
     Dates: start: 20030924, end: 20050101
  2. LEVOXYL [Concomitant]
  3. METHOTREXATE [Concomitant]
  4. NORVASC [Concomitant]
  5. HUMIRA [Concomitant]
  6. ALLEGRA [Concomitant]
  7. ZYRTEC [Concomitant]
  8. ALLERGY MEDICATION (ALLERGY MEDICATION) [Concomitant]
  9. CALCIUM WITH VITAMIN D (CALCIUM PHOSPHATE, CALCIUM SODIUM LACTATE, ERG [Concomitant]
  10. MULTIVITAMIN [Concomitant]
  11. IBUPROFEN [Concomitant]
  12. FOLIC ACID [Concomitant]
  13. TYLENOL PM, EXTRA STRENGTH (DIPHENHYDRAMINE, PARACETAMOL) [Concomitant]
  14. AMITRIPTYLINE HCL [Concomitant]

REACTIONS (11)
  - ASTHENIA [None]
  - EXCORIATION [None]
  - EXFOLIATIVE RASH [None]
  - MOBILITY DECREASED [None]
  - MUSCLE CONTRACTIONS INVOLUNTARY [None]
  - MUSCLE FATIGUE [None]
  - MUSCLE SPASMS [None]
  - MUSCULOSKELETAL STIFFNESS [None]
  - MYALGIA [None]
  - MYOPATHY [None]
  - RHEUMATOID ARTHRITIS [None]
